FAERS Safety Report 9670427 (Version 3)
Quarter: 2014Q1

REPORT INFORMATION
  Report Type: Report from Study
  Country: FR (occurrence: FR)
  Receive Date: 20131105
  Receipt Date: 20140225
  Transmission Date: 20141002
  Serious: Yes (Other)
  Sender: FDA-Public Use
  Company Number: PHHY2013FR124020

PATIENT
  Age: 74 Year
  Sex: Female

DRUGS (11)
  1. ACLASTA/ZOLEDRONATE [Suspect]
     Indication: OSTEOPOROSIS
     Route: 042
     Dates: start: 20110517
  2. TAREG [Concomitant]
     Dosage: UNK
     Dates: start: 2005
  3. DIVARIUS [Concomitant]
     Dosage: UNK
     Dates: start: 2008
  4. LIPANTHYL [Concomitant]
     Dosage: UNK
     Dates: start: 2005
  5. DOLIPRANE [Concomitant]
     Dosage: UNK
     Dates: start: 2011, end: 2011
  6. IXPRIM [Concomitant]
     Dosage: UNK
     Dates: start: 2012
  7. BIPROFENID [Concomitant]
     Dosage: UNK
     Dates: start: 2012
  8. CODOLIPRANE [Concomitant]
     Dosage: UNK
     Dates: start: 2012
  9. MYOLASTAN [Concomitant]
     Dosage: UNK
     Dates: start: 2012
  10. CALCIDOSE [Concomitant]
     Dosage: UNK
     Dates: start: 2010
  11. FORSTEO [Concomitant]
     Dosage: UNK
     Dates: start: 2012

REACTIONS (1)
  - Sternal fracture [Unknown]
